FAERS Safety Report 17351172 (Version 2)
Quarter: 2020Q2

REPORT INFORMATION
  Report Type: Spontaneous
  Country: JP (occurrence: JP)
  Receive Date: 20200130
  Receipt Date: 20200423
  Transmission Date: 20200713
  Serious: Yes (Hospitalization, Other)
  Sender: FDA-Public Use
  Company Number: JP-AMGEN-JPNSP2020016224

PATIENT
  Age: 58 Year
  Sex: Female
  Weight: 39 kg

DRUGS (10)
  1. ACICLOVIR [Concomitant]
     Active Substance: ACYCLOVIR
     Indication: PROPHYLAXIS
     Dosage: 200 MG, EVERYDAY
     Route: 048
  2. TOKISHIGYAKUKAGOSHUYUSHOKYOTO [Concomitant]
     Dosage: UNK, Q8H
     Route: 048
  3. KYPROLIS [Suspect]
     Active Substance: CARFILZOMIB
     Indication: PLASMA CELL MYELOMA
     Dosage: 72 MG
     Route: 041
     Dates: start: 20181120, end: 20191204
  4. DEXART [Concomitant]
     Active Substance: DEXAMETHASONE SODIUM PHOSPHATE
     Indication: PLASMA CELL MYELOMA
     Dosage: 19.8 MG
     Route: 041
     Dates: start: 20181120, end: 20191204
  5. TAKECAB [Concomitant]
     Active Substance: VONOPRAZAN FUMARATE
     Indication: PROPHYLAXIS
     Dosage: 20 MG, EVERYDAY
     Route: 048
  6. POLAPREZINC [Concomitant]
     Active Substance: POLAPREZINC
     Indication: PROPHYLAXIS
     Dosage: UNK, Q12H
     Route: 048
  7. TOCOPHEROL ACETATE TOWA [Concomitant]
     Dosage: UNK, Q8H
     Route: 048
  8. LIXIANA OD [Concomitant]
     Active Substance: EDOXABAN TOSYLATE
     Indication: PROPHYLAXIS
     Dosage: UNK, EVERYDAY
     Route: 048
  9. DAIPHEN [Concomitant]
     Active Substance: SULFAMETHOXAZOLE\TRIMETHOPRIM
     Indication: PROPHYLAXIS
     Dosage: UNK UNK, EVERYDAY
     Route: 048
  10. MIYA-BM [Concomitant]
     Active Substance: CLOSTRIDIUM BUTYRICUM SPORES STRAIN M-55
     Indication: PROPHYLAXIS
     Dosage: UNK UNK, Q8H
     Route: 048

REACTIONS (1)
  - Cardiac failure congestive [Recovering/Resolving]

NARRATIVE: CASE EVENT DATE: 20191210
